FAERS Safety Report 6196807-3 (Version None)
Quarter: 2009Q2

REPORT INFORMATION
  Report Type: 
  Country: None (occurrence: None)
  Receive Date: 20090520
  Receipt Date: 20090514
  Transmission Date: 20091009
  Serious: Yes (Hospitalization)
  Sender: FDA-Public Use
  Company Number: PHHY2009MX18818

PATIENT
  Age: 90 Year
  Sex: Female

DRUGS (1)
  1. ZELMAC [Suspect]
     Indication: IRRITABLE BOWEL SYNDROME
     Dosage: 6 MG, 2 TABS PER DAY
     Route: 048

REACTIONS (2)
  - ARTHRALGIA [None]
  - OSTEOARTHRITIS [None]
